FAERS Safety Report 22093401 (Version 2)
Quarter: 2023Q2

REPORT INFORMATION
  Report Type: Report from Study
  Country: US (occurrence: None)
  Receive Date: 20230314
  Receipt Date: 20230420
  Transmission Date: 20230722
  Serious: Yes (Death)
  Sender: FDA-Public Use
  Company Number: US-ROCHE-3307452

PATIENT
  Age: 59 Year
  Sex: Male

DRUGS (2)
  1. POLATUZUMAB VEDOTIN [Suspect]
     Active Substance: POLATUZUMAB VEDOTIN
     Indication: Richter^s syndrome
     Dosage: DATE PATIENT COMPLETED TX/LAST DOSE: 06/JAN/2022 AT 1.8 MG/KG
     Route: 065
     Dates: start: 20211215
  2. RITUXIMAB [Suspect]
     Active Substance: RITUXIMAB
     Indication: Richter^s syndrome
     Dosage: LAST DOSE: 06/JAN/2022 AT 375 MG/M2
     Route: 041

REACTIONS (1)
  - Disease progression [Fatal]
